FAERS Safety Report 14659635 (Version 3)
Quarter: 2018Q4

REPORT INFORMATION
  Report Type: Other
  Country: JP (occurrence: JP)
  Receive Date: 20180320
  Receipt Date: 20181107
  Transmission Date: 20190204
  Serious: Yes (Hospitalization)
  Sender: FDA-Public Use
  Company Number: JP-ACTELION-A-CH2018-169094

PATIENT
  Age: 36 Year
  Sex: Female

DRUGS (11)
  1. URSO [Concomitant]
     Active Substance: URSODIOL
  2. EPOPROSTENOL ACT [Suspect]
     Active Substance: EPOPROSTENOL
     Dosage: UNK
     Route: 042
     Dates: start: 20170424
  3. TAKECAB [Concomitant]
     Active Substance: VONOPRAZAN FUMURATE
  4. EPOPROSTENOL ACT [Suspect]
     Active Substance: EPOPROSTENOL
     Indication: PULMONARY ARTERIAL HYPERTENSION
     Dosage: 78 NG/KG, PER MIN
     Route: 042
     Dates: start: 201706
  5. OXYGEN. [Concomitant]
     Active Substance: OXYGEN
  6. OPSUMIT [Concomitant]
     Active Substance: MACITENTAN
  7. EPOPROSTENOL ACT [Suspect]
     Active Substance: EPOPROSTENOL
     Dosage: 85 NG/KG, PER MIN
     Route: 042
  8. DIART [Concomitant]
     Active Substance: AZOSEMIDE
  9. ADCIRCA [Concomitant]
     Active Substance: TADALAFIL
  10. SAMSCA [Concomitant]
     Active Substance: TOLVAPTAN
  11. SPIRONOLACTONE. [Concomitant]
     Active Substance: SPIRONOLACTONE

REACTIONS (6)
  - Iron deficiency anaemia [Recovering/Resolving]
  - Malaise [Unknown]
  - Malnutrition [Unknown]
  - Transplant evaluation [Unknown]
  - Arthralgia [Unknown]
  - Nausea [Unknown]

NARRATIVE: CASE EVENT DATE: 201706
